FAERS Safety Report 4639753-6 (Version None)
Quarter: 2005Q2

REPORT INFORMATION
  Report Type: 
  Country: None (occurrence: None)
  Receive Date: 20050328
  Receipt Date: 20050124
  Transmission Date: 20051028
  Serious: No
  Sender: FDA-Public Use
  Company Number: USA050189061

PATIENT
  Age: 32 Year
  Sex: Female

DRUGS (3)
  1. STRATTERA [Suspect]
     Indication: ATTENTION DEFICIT/HYPERACTIVITY DISORDER
     Dosage: 80 MG DAY
     Dates: start: 20041101
  2. PAXIL CR [Concomitant]
  3. QUINAPRIL [Concomitant]

REACTIONS (6)
  - ANOREXIA [None]
  - BLOOD PRESSURE INCREASED [None]
  - HEADACHE [None]
  - INSOMNIA [None]
  - PARANOIA [None]
  - WEIGHT DECREASED [None]
